FAERS Safety Report 6489966-6 (Version None)
Quarter: 2009Q4

REPORT INFORMATION
  Report Type: 
  Country: None (occurrence: None)
  Receive Date: 20091211
  Receipt Date: 20091201
  Transmission Date: 20100525
  Serious: Yes (Other)
  Sender: FDA-Public Use
  Company Number: PHHY2009GB52911

PATIENT
  Age: 16 Year
  Sex: Female

DRUGS (4)
  1. CLOZAPINE [Suspect]
  2. OLANZAPINE [Suspect]
     Dosage: 10 MG OD
  3. OLANZAPINE [Suspect]
     Dosage: 5 MG OD
  4. VALPROATE SODIUM [Concomitant]

REACTIONS (1)
  - HAEMOLYTIC ANAEMIA [None]
